FAERS Safety Report 5457145-7 (Version None)
Quarter: 2007Q3

REPORT INFORMATION
  Report Type: 
  Country: None (occurrence: None)
  Receive Date: 20070918
  Receipt Date: 20061227
  Transmission Date: 20080115
  Serious: No
  Sender: FDA-Public Use
  Company Number: US-ASTRAZENECA-2006UW28616

PATIENT
  Age: 52 Year
  Sex: Female
  Weight: 49.9 kg

DRUGS (1)
  1. SEROQUEL [Suspect]
     Indication: SLEEP DISORDER
     Route: 048

REACTIONS (3)
  - CONTUSION [None]
  - FALL [None]
  - MYALGIA [None]
